FAERS Safety Report 9540833 (Version 1)
Quarter: 2013Q3

REPORT INFORMATION
  Report Type: Spontaneous
  Country: US (occurrence: US)
  Receive Date: 20130920
  Receipt Date: 20130920
  Transmission Date: 20140515
  Serious: Yes (Other)
  Sender: FDA-Public Use
  Company Number: US-PFIZER INC-2013271059

PATIENT
  Age: 61 Year
  Sex: Female
  Weight: 53.06 kg

DRUGS (8)
  1. LYRICA [Suspect]
     Indication: INTERVERTEBRAL DISC PROTRUSION
     Dosage: UNK
  2. NEURONTIN [Suspect]
     Indication: INTERVERTEBRAL DISC PROTRUSION
     Dosage: UNK
  3. AMITRIPTYLINE [Concomitant]
     Dosage: 25 MG, 1X/DAY
  4. METOPROLOL [Concomitant]
     Indication: HYPERTENSION
     Dosage: 50 MG, 2X/DAY
  5. FENTANYL [Concomitant]
     Indication: PAIN
     Dosage: UNK
  6. MORPHINE ER [Concomitant]
     Indication: PAIN
     Dosage: 15 MG, AS NEEDED
  7. VICODIN [Concomitant]
     Indication: PAIN
     Dosage: 7.5/500 MG/MG, AS NEEDED
  8. ATORVASTATIN [Concomitant]
     Dosage: 40 MG, 1X/DAY

REACTIONS (3)
  - Brain injury [Unknown]
  - Mental impairment [Unknown]
  - Chills [Unknown]
